FAERS Safety Report 9774820 (Version 2)
Quarter: 2013Q4

REPORT INFORMATION
  Report Type: Spontaneous
  Country: PT (occurrence: PT)
  Receive Date: 20131220
  Receipt Date: 20131220
  Transmission Date: 20140711
  Serious: Yes (Disabling)
  Sender: FDA-Public Use
  Company Number: PT-009507513-1312PRT004959

PATIENT
  Age: 47 Year
  Sex: Female
  Weight: 78 kg

DRUGS (4)
  1. IVEMEND [Suspect]
     Indication: PROPHYLAXIS OF NAUSEA AND VOMITING
     Dosage: 150 MG RECONSTITUTED AND DILUTED WITH 9 MG/ML NACL, 20-30 MIN INFUSION; FIRST CYCLE
     Route: 042
     Dates: start: 2013
  2. IVEMEND [Suspect]
     Dosage: 150 MG RECONSTITUTED AND DILUTED WITH 9 MG/ML NACL, GREATER DILUTION; SECOND CYCLE
     Route: 042
     Dates: start: 20131217
  3. DOXORUBICIN [Concomitant]
  4. CYCLOPHOSPHAMIDE [Concomitant]

REACTIONS (4)
  - Pain in extremity [Recovered/Resolved]
  - Infusion site pain [Recovered/Resolved]
  - Thrombophlebitis [Recovered/Resolved]
  - Local reaction [Unknown]
